FAERS Safety Report 19706912 (Version 1)
Quarter: 2021Q3

REPORT INFORMATION
  Report Type: Other
  Country: JP (occurrence: JP)
  Receive Date: 20210817
  Receipt Date: 20210817
  Transmission Date: 20211014
  Serious: Yes (Other)
  Sender: FDA-Public Use
  Company Number: JP-INNOGENIX, LLC-2115152

PATIENT
  Age: 73 Year
  Sex: Male

DRUGS (5)
  1. MEMANTINE. [Concomitant]
     Active Substance: MEMANTINE
     Route: 065
  2. CLONAZEPAM. [Concomitant]
     Active Substance: CLONAZEPAM
     Route: 065
  3. DULOXETINE. [Concomitant]
     Active Substance: DULOXETINE
     Route: 065
  4. HALOPERIDOL. [Suspect]
     Active Substance: HALOPERIDOL
     Indication: TOURETTE^S DISORDER
     Route: 065
  5. MIRTAZAPINE. [Concomitant]
     Active Substance: MIRTAZAPINE
     Route: 065

REACTIONS (1)
  - Tourette^s disorder [Recovering/Resolving]
